FAERS Safety Report 11679544 (Version 2)
Quarter: 2015Q4

REPORT INFORMATION
  Report Type: Spontaneous
  Country: US (occurrence: US)
  Receive Date: 20151027
  Receipt Date: 20151104
  Transmission Date: 20160304
  Serious: No
  Sender: FDA-Public Use
  Company Number: US-ELI_LILLY_AND_COMPANY-US201010000097

PATIENT
  Age: 71 Year
  Sex: Female

DRUGS (3)
  1. FORTEO [Suspect]
     Active Substance: TERIPARATIDE
     Dosage: 20 UG, DAILY (1/D)
  2. FORTEO [Suspect]
     Active Substance: TERIPARATIDE
     Indication: OSTEOPOROSIS
     Dosage: 20 UG, DAILY (1/D)
     Dates: start: 20100929
  3. FORTEO [Suspect]
     Active Substance: TERIPARATIDE
     Dosage: 20 UG, DAILY (1/D)

REACTIONS (9)
  - Injection site pain [Not Recovered/Not Resolved]
  - Anxiety [Unknown]
  - Injection site haemorrhage [Unknown]
  - Nervousness [Unknown]
  - Injection site bruising [Unknown]
  - Dysgeusia [Unknown]
  - Haemorrhage [Recovered/Resolved]
  - Injury associated with device [Unknown]
  - Muscle spasms [Unknown]

NARRATIVE: CASE EVENT DATE: 20100929
